FAERS Safety Report 23783417 (Version 1)
Quarter: 2024Q2

REPORT INFORMATION
  Report Type: Spontaneous
  Country: US (occurrence: None)
  Receive Date: 20240424
  Receipt Date: 20240424
  Transmission Date: 20240716
  Serious: Yes (Hospitalization)
  Sender: FDA-Public Use
  Company Number: None

PATIENT
  Age: 71 Year
  Sex: Female
  Weight: 71.55 kg

DRUGS (4)
  1. MOUNJARO [Suspect]
     Active Substance: TIRZEPATIDE
     Indication: Overweight
     Dosage: OTHER FREQUENCY : WEEKLY;?
     Route: 058
     Dates: start: 20240122, end: 20240416
  2. MOUNJARO [Concomitant]
     Active Substance: TIRZEPATIDE
     Dates: start: 20240122, end: 20240213
  3. MOUNJARO [Concomitant]
     Active Substance: TIRZEPATIDE
     Dates: start: 20240223, end: 20240323
  4. MOUNJARO [Concomitant]
     Active Substance: TIRZEPATIDE
     Dates: start: 20140403, end: 20240416

REACTIONS (3)
  - Nausea [None]
  - Vomiting [None]
  - Dehydration [None]

NARRATIVE: CASE EVENT DATE: 20240420
